FAERS Safety Report 14599969 (Version 1)
Quarter: 2018Q1

REPORT INFORMATION
  Report Type: Spontaneous
  Country: FR (occurrence: FR)
  Receive Date: 20180305
  Receipt Date: 20180305
  Transmission Date: 20180509
  Serious: Yes (Other)
  Sender: FDA-Public Use
  Company Number: FR-TEVA-2018-FR-865190

PATIENT
  Age: 54 Year
  Sex: Female
  Weight: 46 kg

DRUGS (6)
  1. DEPAKINE 500 MG, COMPRIM? GASTRO-R?SISTANT [Suspect]
     Active Substance: VALPROATE SODIUM
     Indication: EPILEPSY
     Route: 048
     Dates: start: 200711
  2. LEVOTHYROX [Concomitant]
     Active Substance: LEVOTHYROXINE
     Route: 048
  3. THAIS 25 MICROGRAMMES/24 HEURES, DISPOSITIF TRANSDERMIQUE [Concomitant]
     Indication: HORMONE REPLACEMENT THERAPY
     Route: 062
  4. GABAPENTIN. [Suspect]
     Active Substance: GABAPENTIN
     Indication: EPILEPSY
     Route: 048
     Dates: start: 20060124
  5. RIVOTRIL [Suspect]
     Active Substance: CLONAZEPAM
     Indication: EPILEPSY
     Route: 048
     Dates: start: 2008
  6. PROGESTAN 100 MG, CAPSULE MOLLE OU CAPSULE MOLLE VAGINALE [Concomitant]
     Indication: HORMONE REPLACEMENT THERAPY
     Route: 048

REACTIONS (1)
  - Thrombocytopenia [Not Recovered/Not Resolved]

NARRATIVE: CASE EVENT DATE: 2015
